FAERS Safety Report 4884408-6 (Version None)
Quarter: 2006Q1

REPORT INFORMATION
  Report Type: 
  Country: None (occurrence: None)
  Receive Date: 20060117
  Receipt Date: 20060106
  Transmission Date: 20060701
  Serious: Yes (Hospitalization, Other)
  Sender: FDA-Public Use
  Company Number: KII-2006-0020649

PATIENT
  Age: 46 Year
  Sex: Female

DRUGS (4)
  1. MORPHINE SULFATE [Suspect]
     Dosage: SEE TEXT, ORAL
     Route: 048
  2. BENZODIAZEPINE DERIVATIVES () [Suspect]
     Dosage: ORAL
     Route: 048
  3. ATROPINE W/DIPHENOXYLATE (ATROPINE SULFATE, DIPHENOXYLATE HYDROCHLORID [Concomitant]
  4. COLCHICUM JTL LIQ [Concomitant]

REACTIONS (17)
  - ASPIRATION [None]
  - BLOOD CREATININE INCREASED [None]
  - BLOOD PRESSURE INCREASED [None]
  - BLOOD UREA INCREASED [None]
  - BODY TEMPERATURE INCREASED [None]
  - BREATH SOUNDS ABNORMAL [None]
  - CHROMATURIA [None]
  - COMA [None]
  - HEART RATE INCREASED [None]
  - LETHARGY [None]
  - LOSS OF CONSCIOUSNESS [None]
  - MULTIPLE DRUG OVERDOSE [None]
  - OXYGEN SATURATION DECREASED [None]
  - RHONCHI [None]
  - SOMNOLENCE [None]
  - URINE ABNORMALITY [None]
  - WHITE BLOOD CELL COUNT INCREASED [None]
